FAERS Safety Report 17960187 (Version 1)
Quarter: 2020Q2

REPORT INFORMATION
  Report Type: Spontaneous
  Country: US (occurrence: US)
  Receive Date: 20200629
  Receipt Date: 20200629
  Transmission Date: 20200714
  Serious: Yes (Hospitalization, Other)
  Sender: FDA-Public Use
  Company Number: US-SHILPA MEDICARE LIMITED-SML-US-2020-00170

PATIENT
  Age: 65 Year
  Sex: Male

DRUGS (6)
  1. IMATINIB, UNKNOWN [Suspect]
     Active Substance: IMATINIB
     Dosage: RE-STARTED WITH AT AN UNKNOWN DOSE
     Route: 065
  2. IMATINIB, UNKNOWN [Suspect]
     Active Substance: IMATINIB
     Indication: CHRONIC MYELOID LEUKAEMIA
     Dosage: STARTED WITH DOSE REDUCTION AT AN UNKNOWN DOSE
     Route: 065
  3. IMATINIB, UNKNOWN [Suspect]
     Active Substance: IMATINIB
     Dosage: RE-STARTED WITH AT AN UNKNOWN DOSE
     Route: 065
  4. VEDOLIZUMAB [Suspect]
     Active Substance: VEDOLIZUMAB
     Indication: COLITIS ULCERATIVE
     Route: 065
  5. IMATINIB, UNKNOWN [Suspect]
     Active Substance: IMATINIB
     Indication: CHRONIC MYELOID LEUKAEMIA
     Dosage: STARTED WITH DOSE REDUCTION AT AN UNKNOWN DOSE
     Route: 065
  6. MESALAMINE. [Suspect]
     Active Substance: MESALAMINE
     Indication: COLITIS ULCERATIVE
     Route: 065

REACTIONS (6)
  - Clostridium difficile colitis [Recovering/Resolving]
  - Thrombocytopenia [Unknown]
  - Colitis ulcerative [Recovering/Resolving]
  - Cytomegalovirus colitis [Recovering/Resolving]
  - Refractory cytopenia with unilineage dysplasia [Not Recovered/Not Resolved]
  - Hypoalbuminaemia [Unknown]
